FAERS Safety Report 17371502 (Version 1)
Quarter: 2020Q1

REPORT INFORMATION
  Report Type: Report from Study
  Country: PL (occurrence: PL)
  Receive Date: 20200205
  Receipt Date: 20200205
  Transmission Date: 20200409
  Serious: Yes (Hospitalization, Other)
  Sender: FDA-Public Use
  Company Number: PL-INVENTIA-000355

PATIENT
  Age: 51 Year
  Sex: Female

DRUGS (6)
  1. METFORMIN [Concomitant]
     Active Substance: METFORMIN HYDROCHLORIDE
     Indication: TYPE 2 DIABETES MELLITUS
  2. DULOXETINE. [Suspect]
     Active Substance: DULOXETINE
     Indication: ANTIDEPRESSANT THERAPY
  3. NEBIVOLOL. [Concomitant]
     Active Substance: NEBIVOLOL
     Indication: CARDIOVASCULAR DISORDER
  4. DAPAGLIFLOZIN. [Concomitant]
     Active Substance: DAPAGLIFLOZIN
     Indication: TYPE 2 DIABETES MELLITUS
  5. THIOCTIC ACID [Concomitant]
     Active Substance: .ALPHA.-LIPOIC ACID
  6. PROPAFENONE. [Interacting]
     Active Substance: PROPAFENONE
     Indication: CARDIOVASCULAR DISORDER

REACTIONS (3)
  - Granulocytopenia [Unknown]
  - Drug level increased [Unknown]
  - Drug interaction [Unknown]
